FAERS Safety Report 4942666-3 (Version None)
Quarter: 2006Q1

REPORT INFORMATION
  Report Type: 
  Country: None (occurrence: None)
  Receive Date: 20060309
  Receipt Date: 20060222
  Transmission Date: 20060701
  Serious: Yes (Other)
  Sender: FDA-Public Use
  Company Number: 2006-00418

PATIENT
  Age: 55 Year
  Sex: Male

DRUGS (1)
  1. VELCADE [Suspect]
     Indication: MULTIPLE MYELOMA
     Dosage: 1.30 MG/M2, 2/WEEK, UNKNOWN
     Dates: start: 20050101

REACTIONS (5)
  - ALPHA TUMOUR NECROSIS FACTOR INCREASED [None]
  - CUTANEOUS VASCULITIS [None]
  - GASTROINTESTINAL TOXICITY [None]
  - LEUKOCYTOCLASTIC VASCULITIS [None]
  - THROMBOCYTOPENIA [None]
